FAERS Safety Report 19067641 (Version 1)
Quarter: 2021Q1

REPORT INFORMATION
  Report Type: Spontaneous
  Country: US (occurrence: US)
  Receive Date: 20210326
  Receipt Date: 20210326
  Transmission Date: 20210420
  Serious: Yes (Other)
  Sender: FDA-Public Use
  Company Number: 2021PHA00050

PATIENT
  Age: 50 Year
  Sex: Male
  Weight: 117.9 kg

DRUGS (5)
  1. NATUREMADE SAM?E 400 MG [Suspect]
     Active Substance: ADEMETIONINE
     Route: 048
     Dates: end: 2021
  2. PRILOSEC (OMEPRAZOLE) [Concomitant]
     Active Substance: OMEPRAZOLE MAGNESIUM
  3. CBD (CANNABIDIOL) OIL (DIETARY SUPPLEMENT) [Suspect]
     Active Substance: CANNABIDIOL\HERBALS
     Dates: start: 201911
  4. NATUREMADE SAM?E 400 MG (DIETARY SUPPLEMENT) TABLET [Suspect]
     Active Substance: ADEMETIONINE
     Indication: NUTRITIONAL SUPPLEMENTATION
     Route: 048
     Dates: start: 201911, end: 2020
  5. PROPECIA [Concomitant]
     Active Substance: FINASTERIDE

REACTIONS (4)
  - Erectile dysfunction [None]
  - Genital hypoaesthesia [None]
  - Loss of libido [None]
  - Anorgasmia [None]
